FAERS Safety Report 19902106 (Version 2)
Quarter: 2021Q4

REPORT INFORMATION
  Report Type: Spontaneous
  Country: ES (occurrence: ES)
  Receive Date: 20210930
  Receipt Date: 20211006
  Transmission Date: 20220304
  Serious: Yes (Other)
  Sender: FDA-Public Use
  Company Number: ES-UCBSA-2021023693

PATIENT
  Age: 62 Year
  Sex: Male

DRUGS (5)
  1. LEVETIRACETAM [Suspect]
     Active Substance: LEVETIRACETAM
     Indication: Partial seizures with secondary generalisation
     Dosage: 1000 MILLIGRAM, QD (500 MILLIGRAM, 2X/DAY (BID))
     Dates: start: 2014
  2. LEVETIRACETAM [Suspect]
     Active Substance: LEVETIRACETAM
     Dosage: 3000 MILLIGRAM
     Dates: end: 2017
  3. BRIVARACETAM [Suspect]
     Active Substance: BRIVARACETAM
     Indication: Partial seizures with secondary generalisation
     Dosage: 200 MILLIGRAM
     Dates: start: 2017
  4. LACOSAMIDE [Suspect]
     Active Substance: LACOSAMIDE
     Indication: Partial seizures with secondary generalisation
     Dosage: 200 MILLIGRAM
  5. LACOSAMIDE [Suspect]
     Active Substance: LACOSAMIDE
     Dosage: 300 MILLIGRAM

REACTIONS (4)
  - Partial seizures with secondary generalisation [Recovered/Resolved]
  - Focal dyscognitive seizures [Not Recovered/Not Resolved]
  - Drug ineffective [Unknown]
  - Irritability [Unknown]
